FAERS Safety Report 6498248-8 (Version None)
Quarter: 2009Q4

REPORT INFORMATION
  Report Type: 
  Country: None (occurrence: None)
  Receive Date: 20091215
  Receipt Date: 20091204
  Transmission Date: 20100525
  Serious: Yes (Hospitalization)
  Sender: FDA-Public Use
  Company Number: B0590890A

PATIENT
  Sex: Male

DRUGS (7)
  1. ROPINIROLE [Suspect]
     Indication: PARKINSON'S DISEASE
     Route: 048
     Dates: start: 20090502, end: 20090828
  2. PLACEBO [Suspect]
     Indication: PARKINSON'S DISEASE
     Dates: start: 20090502, end: 20090828
  3. SELEGILINE HCL [Suspect]
     Indication: PARKINSON'S DISEASE
     Dosage: 2.5MG TWICE PER DAY
     Route: 048
     Dates: start: 20090304, end: 20090915
  4. MADOPAR [Suspect]
     Indication: PARKINSON'S DISEASE
     Route: 048
     Dates: start: 20090711, end: 20091012
  5. COMTAN [Suspect]
     Indication: PARKINSON'S DISEASE
     Dosage: 200MG THREE TIMES PER DAY
     Route: 048
     Dates: start: 20090401, end: 20090828
  6. PARLODEL [Concomitant]
     Indication: PARKINSON'S DISEASE
     Route: 048
     Dates: start: 20090902, end: 20091012
  7. DOPS (JAPAN) [Concomitant]
     Indication: PARKINSON'S DISEASE
     Dosage: 600MG PER DAY
     Route: 048
     Dates: start: 20090204

REACTIONS (6)
  - CHILLS [None]
  - DEHYDRATION [None]
  - DYSKINESIA [None]
  - NEUROLEPTIC MALIGNANT SYNDROME [None]
  - PAIN IN EXTREMITY [None]
  - PYREXIA [None]
